FAERS Safety Report 8731735 (Version 3)
Quarter: 2012Q4

REPORT INFORMATION
  Report Type: 
  Country: JP (occurrence: JP)
  Receive Date: 20120820
  Receipt Date: 20121008
  Transmission Date: 20130627
  Serious: Yes (Hospitalization, Other)
  Sender: FDA-Public Use
  Company Number: JP-009507513-1208JPN007325

PATIENT
  Age: 66 Year
  Sex: Male
  Weight: 54 kg

DRUGS (20)
  1. PEGINTRON [Suspect]
     Indication: HEPATITIS C
     Dosage: 1.8mcg/kg/week
     Route: 058
     Dates: start: 20120306, end: 20120513
  2. PEGINTRON [Suspect]
     Dosage: 1.4mcg/kg/week
     Route: 058
     Dates: start: 20120514, end: 20120814
  3. REBETOL [Suspect]
     Indication: HEPATITIS C
     Dosage: 600 mg, qd
     Route: 048
     Dates: start: 20120306, end: 20120318
  4. REBETOL [Suspect]
     Dosage: 400 mg, qd
     Route: 048
     Dates: start: 20120319, end: 20120430
  5. REBETOL [Suspect]
     Dosage: 200 mg, qd
     Route: 048
     Dates: start: 20120501, end: 20120528
  6. REBETOL [Suspect]
     Dosage: 400 mg, qd
     Route: 048
     Dates: start: 20120529, end: 20120821
  7. TELAVIC [Concomitant]
     Indication: HEPATITIS C
     Route: 048
     Dates: start: 20120306, end: 20120423
  8. TELAVIC [Concomitant]
     Dosage: 1500 mg, Once
     Route: 048
     Dates: start: 20120424, end: 20120507
  9. TELAVIC [Concomitant]
     Dosage: 1000 mg, Once
     Route: 048
     Dates: start: 20120508, end: 20120508
  10. UBIRON [Concomitant]
     Indication: HEPATITIS C
     Route: 048
  11. REBAMIPIDE [Concomitant]
     Indication: PROPHYLAXIS
     Route: 048
  12. REBAMIPIDE [Concomitant]
     Route: 048
     Dates: start: 20120306
  13. UNSPECIFIED INGREDIENT [Concomitant]
     Indication: HYPERTENSION
     Route: 048
     Dates: end: 20120323
  14. EPADEL S [Concomitant]
     Indication: PROPHYLAXIS
     Route: 048
     Dates: start: 20120306
  15. PROMAC (NITROFURANTOIN) [Concomitant]
     Indication: PROPHYLAXIS
     Route: 048
     Dates: start: 20120306
  16. LENDEM D [Concomitant]
     Indication: PROPHYLAXIS
     Route: 048
     Dates: start: 20120307
  17. ELIETEN [Concomitant]
     Indication: PROPHYLAXIS
     Route: 048
     Dates: start: 20120313
  18. NU-LOTAN [Concomitant]
     Indication: HYPERTENSION
     Route: 048
     Dates: start: 20120427
  19. FEROTYM [Concomitant]
     Indication: PROPHYLAXIS
     Dosage: 100 mg, UNK
     Route: 048
     Dates: end: 20120617
  20. FEROTYM [Concomitant]
     Dosage: 50 mg, UNK
     Route: 048
     Dates: start: 20120618, end: 20120703

REACTIONS (4)
  - Renal impairment [Recovered/Resolved]
  - Drug eruption [Not Recovered/Not Resolved]
  - Anaemia [None]
  - Tongue disorder [None]
